FAERS Safety Report 22673737 (Version 2)
Quarter: 2023Q4

REPORT INFORMATION
  Report Type: Spontaneous
  Country: US (occurrence: US)
  Receive Date: 20230705
  Receipt Date: 20231019
  Transmission Date: 20240110
  Serious: Yes (Death, Hospitalization)
  Sender: FDA-Public Use
  Company Number: US-PFIZER INC-202300239396

PATIENT
  Age: 79 Year
  Sex: Male
  Weight: 61.87 kg

DRUGS (1)
  1. VYNDAMAX [Suspect]
     Active Substance: TAFAMIDIS
     Indication: Protein albumin ratio
     Dosage: UNK, 1X/DAY
     Dates: start: 2021

REACTIONS (4)
  - Death [Fatal]
  - Ascites [Unknown]
  - Pulmonary oedema [Unknown]
  - Off label use [Unknown]

NARRATIVE: CASE EVENT DATE: 20231006
